FAERS Safety Report 6945486-3 (Version None)
Quarter: 2010Q3

REPORT INFORMATION
  Report Type: 
  Country: None (occurrence: None)
  Receive Date: 20100827
  Receipt Date: 20100823
  Transmission Date: 20110219
  Serious: No
  Sender: FDA-Public Use
  Company Number: US-PFIZER INC-2010098793

PATIENT
  Sex: Male
  Weight: 73.469 kg

DRUGS (6)
  1. VIAGRA [Suspect]
     Indication: ERECTILE DYSFUNCTION
     Dosage: 100 MG, AS NEEDED
     Route: 048
     Dates: start: 20100125, end: 20100818
  2. LOTENSIN [Concomitant]
     Indication: HYPERTENSION
     Dosage: UNK
  3. INDAPAMIDE [Concomitant]
     Dosage: UNK
  4. SITAGLIPTIN [Concomitant]
     Dosage: UNK
  5. AMARYL [Concomitant]
     Indication: DIABETES MELLITUS
     Dosage: 4 MG, UNK
  6. METFORMIN [Concomitant]
     Indication: DIABETES MELLITUS
     Dosage: UNK

REACTIONS (1)
  - DRUG INEFFECTIVE [None]
